FAERS Safety Report 8496368-X (Version None)
Quarter: 2012Q3

REPORT INFORMATION
  Report Type: 
  Country: None (occurrence: None)
  Receive Date: 20120709
  Receipt Date: 20120629
  Transmission Date: 20120928
  Serious: Yes (Hospitalization, Other)
  Sender: FDA-Public Use
  Company Number: US-ABBOTT-12P-163-0952282-00

PATIENT
  Sex: Female

DRUGS (2)
  1. HUMIRA [Suspect]
     Indication: RHEUMATOID ARTHRITIS
     Dates: start: 20110701, end: 20120101
  2. ENBREL [Concomitant]
     Indication: RHEUMATOID ARTHRITIS
     Dates: start: 20120629

REACTIONS (4)
  - ROTATOR CUFF SYNDROME [None]
  - IMPAIRED GASTRIC EMPTYING [None]
  - MUSCLE SPASMS [None]
  - ANAESTHETIC COMPLICATION [None]
